FAERS Safety Report 9468764 (Version 1)
Quarter: 2013Q3

REPORT INFORMATION
  Report Type: Spontaneous
  Country: AU (occurrence: AU)
  Receive Date: 20130821
  Receipt Date: 20130821
  Transmission Date: 20140515
  Serious: Yes (Death)
  Sender: FDA-Public Use
  Company Number: AU-BAXTER-2013BAX032121

PATIENT
  Sex: 0

DRUGS (2)
  1. BAXTER 0.9% SODIUM CHLORIDE 450MG_50ML INJECTION BP BAG AHB1306_AHB136 [Suspect]
     Indication: PRODUCT USED FOR UNKNOWN INDICATION
     Route: 042
  2. MORPHINE SULFATE [Suspect]
     Indication: PRODUCT USED FOR UNKNOWN INDICATION
     Route: 042

REACTIONS (3)
  - Death [Fatal]
  - Poor quality drug administered [Unknown]
  - Product colour issue [Unknown]
